FAERS Safety Report 5860131-6 (Version None)
Quarter: 2008Q3

REPORT INFORMATION
  Report Type: 
  Country: None (occurrence: None)
  Receive Date: 20080827
  Receipt Date: 20080815
  Transmission Date: 20090109
  Serious: Yes (Life-Threatening)
  Sender: FDA-Public Use
  Company Number: GB-PFIZER INC-2008069235

PATIENT
  Age: 27 Year
  Sex: Female

DRUGS (3)
  1. AZITHROMYCIN [Suspect]
     Indication: CHLAMYDIAL INFECTION
     Route: 048
  2. MISOPROSTOL [Suspect]
     Indication: PROPHYLAXIS AGAINST GASTROINTESTINAL ULCER
     Route: 067
  3. PROCHLORPERAZINE MALEATE [Suspect]
     Indication: NAUSEA
     Route: 048

REACTIONS (3)
  - LIP SWELLING [None]
  - RASH [None]
  - SENSATION OF FOREIGN BODY [None]
